FAERS Safety Report 10329541 (Version 1)
Quarter: 2014Q3

REPORT INFORMATION
  Report Type: Spontaneous
  Country: GB (occurrence: GB)
  Receive Date: 20140721
  Receipt Date: 20140721
  Transmission Date: 20150326
  Serious: Yes (Hospitalization, Other)
  Sender: FDA-Public Use
  Company Number: GB-TEVA-493528ISR

PATIENT
  Age: 80 Year
  Sex: Female
  Weight: 87 kg

DRUGS (19)
  1. EPILIM [Concomitant]
     Active Substance: VALPROATE SODIUM
     Dates: start: 20140113, end: 20140613
  2. SIMVASTATIN. [Concomitant]
     Active Substance: SIMVASTATIN
     Dates: start: 20140321, end: 20140613
  3. NUTRITIONAL SUPPLEMENT [Concomitant]
     Active Substance: DIETARY SUPPLEMENT
     Dates: start: 20140617
  4. NUTRITIONAL SUPPLEMENT [Concomitant]
     Active Substance: DIETARY SUPPLEMENT
     Dates: start: 20140321, end: 20140522
  5. SIMVASTATIN. [Concomitant]
     Active Substance: SIMVASTATIN
     Dates: start: 20140617
  6. CONOTRANE [Concomitant]
     Dates: start: 20140610, end: 20140617
  7. WARFARIN SODIUM. [Concomitant]
     Active Substance: WARFARIN SODIUM
     Dates: start: 20140321, end: 20140613
  8. WARFARIN SODIUM. [Concomitant]
     Active Substance: WARFARIN SODIUM
     Dates: start: 20140617
  9. ADCAL [Concomitant]
     Dates: start: 20140321, end: 20140613
  10. CONOTRANE [Concomitant]
     Dates: start: 20140508, end: 20140515
  11. ADCAL [Concomitant]
     Dates: start: 20140617
  12. EPILIM [Concomitant]
     Active Substance: VALPROATE SODIUM
     Dates: start: 20140617
  13. FUROSEMIDE. [Concomitant]
     Active Substance: FUROSEMIDE
     Dates: start: 20140617
  14. NITROFURANTOIN. [Suspect]
     Active Substance: NITROFURANTOIN
     Dates: start: 20140613
  15. ISOTARD XL [Concomitant]
     Dates: start: 20140321, end: 20140613
  16. LANSOPRAZOLE. [Concomitant]
     Active Substance: LANSOPRAZOLE
     Dates: start: 20140617
  17. FUROSEMIDE. [Concomitant]
     Active Substance: FUROSEMIDE
     Dates: start: 20140321, end: 20140613
  18. ISOTARD XL [Concomitant]
     Dates: start: 20140617
  19. LANSOPRAZOLE. [Concomitant]
     Active Substance: LANSOPRAZOLE
     Dates: start: 20140321, end: 20140613

REACTIONS (1)
  - Rash [Recovered/Resolved]

NARRATIVE: CASE EVENT DATE: 20140627
